FAERS Safety Report 10460038 (Version 1)
Quarter: 2014Q3

REPORT INFORMATION
  Report Type: Spontaneous
  Country: US (occurrence: US)
  Receive Date: 20140917
  Receipt Date: 20140917
  Transmission Date: 20150326
  Serious: No
  Sender: FDA-Public Use
  Company Number: US-SUCAMPO AG-SPI201400633

PATIENT
  Age: 63 Year
  Sex: Male
  Weight: 74 kg

DRUGS (1)
  1. AMITIZA [Suspect]
     Active Substance: LUBIPROSTONE
     Indication: IRRITABLE BOWEL SYNDROME
     Dosage: 24 MCG, BID
     Route: 048
     Dates: start: 201310, end: 201406

REACTIONS (4)
  - Abdominal pain upper [Recovered/Resolved]
  - Head discomfort [Recovered/Resolved]
  - Dyspnoea [Recovered/Resolved]
  - Defaecation urgency [Recovered/Resolved]

NARRATIVE: CASE EVENT DATE: 201310
